FAERS Safety Report 7720416-5 (Version None)
Quarter: 2011Q3

REPORT INFORMATION
  Report Type: 
  Country: None (occurrence: None)
  Receive Date: 20110825
  Receipt Date: 20110812
  Transmission Date: 20111222
  Serious: Yes (Life-Threatening, Hospitalization)
  Sender: FDA-Public Use
  Company Number: IPC201108-003131

PATIENT
  Age: 28 Year
  Sex: Female

DRUGS (4)
  1. AMIODARONE HCL [Concomitant]
  2. MAGNESIUM SULFATE [Suspect]
     Indication: VENTRICULAR TACHYCARDIA
  3. PROPRANOLOL HYDROCHLORIDE [Suspect]
     Indication: VENTRICULAR TACHYCARDIA
     Dosage: 10 MG THRICE DAILY, ORAL
     Route: 048
  4. VERAPAMIL [Concomitant]

REACTIONS (10)
  - OFF LABEL USE [None]
  - VENTRICULAR HYPOKINESIA [None]
  - DILATATION VENTRICULAR [None]
  - PULMONARY VALVE INCOMPETENCE [None]
  - CHEST DISCOMFORT [None]
  - MITRAL VALVE INCOMPETENCE [None]
  - CAESAREAN SECTION [None]
  - PALPITATIONS [None]
  - VENTRICULAR EXTRASYSTOLES [None]
  - TRICUSPID VALVE INCOMPETENCE [None]
